FAERS Safety Report 8758488 (Version 6)
Quarter: 2013Q3

REPORT INFORMATION
  Report Type: Spontaneous
  Country: US (occurrence: US)
  Receive Date: 20120829
  Receipt Date: 20130820
  Transmission Date: 20140515
  Serious: No
  Sender: FDA-Public Use
  Company Number: US-JNJFOC-20120715404

PATIENT
  Sex: Male

DRUGS (2)
  1. RISPERDAL [Suspect]
     Indication: PRODUCT USED FOR UNKNOWN INDICATION
     Route: 048
  2. INVEGA [Suspect]
     Indication: PRODUCT USED FOR UNKNOWN INDICATION
     Route: 048

REACTIONS (5)
  - Speech disorder [Unknown]
  - Gynaecomastia [Unknown]
  - Dyskinesia [Unknown]
  - Hypertension [Unknown]
  - Weight increased [Unknown]
